FAERS Safety Report 17986413 (Version 1)
Quarter: 2020Q3

REPORT INFORMATION
  Report Type: Spontaneous
  Country: CA (occurrence: CA)
  Receive Date: 20200707
  Receipt Date: 20200707
  Transmission Date: 20201103
  Serious: Yes (Hospitalization, Other)
  Sender: FDA-Public Use
  Company Number: CA-BAXTER-2020BAX013705

PATIENT
  Age: 48 Year
  Sex: Female
  Weight: 106 kg

DRUGS (20)
  1. LEVOFLOXACIN. [Suspect]
     Active Substance: LEVOFLOXACIN
     Indication: TARDIVE DYSKINESIA
     Route: 048
  2. PACLITAXEL. [Suspect]
     Active Substance: PACLITAXEL
     Route: 042
  3. DEXAMETHASONE. [Suspect]
     Active Substance: DEXAMETHASONE
     Indication: SUPPORTIVE CARE
     Route: 048
  4. RANITIDINE HYDROCHLORIDE. [Suspect]
     Active Substance: RANITIDINE HYDROCHLORIDE
     Indication: TARDIVE DYSKINESIA
     Route: 048
  5. DOXORUBICIN HYDROCHLORIDE. [Suspect]
     Active Substance: DOXORUBICIN HYDROCHLORIDE
     Indication: BREAST CANCER
     Route: 042
  6. EMEND [Suspect]
     Active Substance: APREPITANT
     Indication: SUPPORTIVE CARE
     Route: 048
  7. ENOXAPARIN [Suspect]
     Active Substance: ENOXAPARIN
     Indication: TARDIVE DYSKINESIA
     Route: 058
  8. FILGRASTIM [Suspect]
     Active Substance: FILGRASTIM
     Indication: SUPPORTIVE CARE
     Route: 065
  9. LORAZEPAM. [Suspect]
     Active Substance: LORAZEPAM
     Indication: TARDIVE DYSKINESIA
     Route: 048
  10. TRASTUZUMAB. [Suspect]
     Active Substance: TRASTUZUMAB
     Indication: TARDIVE DYSKINESIA
     Route: 065
  11. BETAMETHASONE. [Suspect]
     Active Substance: BETAMETHASONE
     Indication: TARDIVE DYSKINESIA
     Route: 065
  12. ONDANSETRON [Suspect]
     Active Substance: ONDANSETRON
     Indication: SUPPORTIVE CARE
     Route: 048
  13. PACLITAXEL. [Suspect]
     Active Substance: PACLITAXEL
     Indication: BREAST CANCER
     Route: 042
  14. EMEND [Suspect]
     Active Substance: APREPITANT
     Route: 048
  15. METOCLOPRAMIDE. [Suspect]
     Active Substance: METOCLOPRAMIDE
     Indication: TARDIVE DYSKINESIA
     Route: 048
  16. PROCYTOX (CYCLOPHOSPHAMIDE) 2000MG/VIAL [Suspect]
     Active Substance: CYCLOPHOSPHAMIDE
     Indication: TARDIVE DYSKINESIA
     Route: 042
  17. PACLITAXEL. [Suspect]
     Active Substance: PACLITAXEL
     Route: 042
  18. ACETAMINOPHEN AND CODEINE [Suspect]
     Active Substance: ACETAMINOPHEN\CODEINE PHOSPHATE
     Indication: TARDIVE DYSKINESIA
     Dosage: DOSAGE FORM: TABLETS
     Route: 065
  19. PEGFILGRASTIM [Suspect]
     Active Substance: PEGFILGRASTIM
     Indication: SUPPORTIVE CARE
     Route: 058
  20. TRASTUZUMAB. [Suspect]
     Active Substance: TRASTUZUMAB
     Route: 065

REACTIONS (10)
  - Fatigue [Recovered/Resolved]
  - Dyspnoea [Recovered/Resolved]
  - Nausea [Recovered/Resolved]
  - Cough [Recovered/Resolved]
  - Gastrointestinal disorder [Recovered/Resolved]
  - Atelectasis [Recovered/Resolved]
  - Computerised tomogram thorax abnormal [Recovered/Resolved]
  - Hypoxia [Recovered/Resolved]
  - Pyrexia [Recovered/Resolved]
  - Rash [Recovered/Resolved]
